FAERS Safety Report 18618566 (Version 1)
Quarter: 2020Q4

REPORT INFORMATION
  Report Type: Spontaneous
  Country: US (occurrence: US)
  Receive Date: 20201215
  Receipt Date: 20201215
  Transmission Date: 20210114
  Serious: No
  Sender: FDA-Public Use
  Company Number: US-009507513-2012USA002276

PATIENT
  Age: 33 Year
  Sex: Female

DRUGS (5)
  1. STERILE DILUENT (WATER) [Suspect]
     Active Substance: WATER
     Indication: INFERTILITY FEMALE
     Dosage: UNK
     Route: 058
     Dates: start: 20201104
  2. FOLLISTIM AQ [Suspect]
     Active Substance: FOLLITROPIN
  3. GANIRELIX ACETATE INJECTION [Suspect]
     Active Substance: GANIRELIX ACETATE
     Indication: INFERTILITY FEMALE
     Dosage: 250 MICROGRAM DAILY
     Route: 058
     Dates: start: 202011
  4. FOLLISTIM AQ [Suspect]
     Active Substance: FOLLITROPIN
     Indication: INFERTILITY FEMALE
     Dosage: 300 UNITS, STRENGTH: 300 UNITS, TOOK DAILY FOR 11 DAYS DIRECTED BY THE PHYSICIAN
     Route: 058
     Dates: start: 20201104
  5. PREGNYL [Suspect]
     Active Substance: CHORIOGONADOTROPIN ALFA
     Indication: INFERTILITY FEMALE
     Dosage: STRENGTH: 10000 U/V, 10 ML/VIAL, DOSE: 5000 UNITS, ONE DOSE
     Route: 058
     Dates: start: 20201104

REACTIONS (1)
  - Pain [Unknown]

NARRATIVE: CASE EVENT DATE: 202011
